FAERS Safety Report 7588849-8 (Version None)
Quarter: 2011Q3

REPORT INFORMATION
  Report Type: 
  Country: None (occurrence: None)
  Receive Date: 20110705
  Receipt Date: 20110630
  Transmission Date: 20111222
  Serious: Yes (Death, Life-Threatening, Hospitalization)
  Sender: FDA-Public Use
  Company Number: US-TEVA-288601USA

PATIENT
  Sex: Male
  Weight: 85.806 kg

DRUGS (17)
  1. PRAVASTATIN [Concomitant]
     Dosage: 20 MILLIGRAM;
     Dates: start: 19950101
  2. B-KOMPLEX [Concomitant]
     Dosage: 100 MILLIGRAM;
  3. CHLORPROMAZINE [Concomitant]
     Dosage: 150 MILLIGRAM;
  4. VALSARTAN [Concomitant]
     Dosage: 320/25
     Dates: start: 19950101
  5. AMLODIPINE [Concomitant]
     Dosage: 10 MILLIGRAM;
     Dates: start: 19950101
  6. METOPROLOL TARTRATE [Concomitant]
     Dosage: 50 MILLIGRAM;
     Dates: start: 19950101
  7. ACETAMINOPHEN [Concomitant]
  8. CISPLATIN [Suspect]
     Indication: HEAD AND NECK CANCER
     Route: 042
     Dates: start: 20110317, end: 20110317
  9. CALCIUM ACETATE [Concomitant]
     Route: 048
  10. ALBUTEROL [Concomitant]
  11. BISACODYL [Concomitant]
  12. FLUOROURACIL [Suspect]
     Indication: HEAD AND NECK CANCER
     Route: 042
     Dates: start: 20110317, end: 20110321
  13. BLINDED THERAPY [Suspect]
     Indication: HEAD AND NECK CANCER
     Route: 042
     Dates: start: 20110317, end: 20110317
  14. MAGNESIUM HYDROXIDE [Concomitant]
  15. OMEPRAZOLE [Concomitant]
     Dosage: 10 MILLIGRAM;
     Dates: start: 20030101
  16. ACETYLSALICYLIC ACID SRT [Concomitant]
     Dosage: 81 MILLIGRAM;
  17. ROSUVASTATIN [Concomitant]
     Dosage: 50 MILLIGRAM;
     Route: 048

REACTIONS (4)
  - SEPSIS [None]
  - RENAL FAILURE ACUTE [None]
  - CARDIAC ARREST [None]
  - TUMOUR LYSIS SYNDROME [None]
